FAERS Safety Report 12325871 (Version 2)
Quarter: 2016Q3

REPORT INFORMATION
  Report Type: Spontaneous
  Country: DE (occurrence: DE)
  Receive Date: 20160503
  Receipt Date: 20160812
  Transmission Date: 20161109
  Serious: Yes (Death, Hospitalization, Other)
  Sender: FDA-Public Use
  Company Number: DE-BRISTOL-MYERS SQUIBB COMPANY-BMS-2016-033337

PATIENT
  Age: 71 Year
  Sex: Male

DRUGS (1)
  1. NIVOLUMAB BMS [Suspect]
     Active Substance: NIVOLUMAB
     Indication: METASTATIC BRONCHIAL CARCINOMA
     Route: 065

REACTIONS (4)
  - Tumour pseudoprogression [Unknown]
  - Intracranial tumour haemorrhage [Fatal]
  - Chronic obstructive pulmonary disease [Unknown]
  - Product use issue [Unknown]

NARRATIVE: CASE EVENT DATE: 201511
